FAERS Safety Report 5133183-9 (Version None)
Quarter: 2006Q4

REPORT INFORMATION
  Report Type: 
  Country: None (occurrence: None)
  Receive Date: 20061018
  Receipt Date: 20061002
  Transmission Date: 20070319
  Serious: Yes (Other)
  Sender: FDA-Public Use
  Company Number: 8019425

PATIENT
  Age: 44 Year
  Sex: Female

DRUGS (2)
  1. PREDNISOLONE [Suspect]
     Indication: ANAEMIA HAEMOLYTIC AUTOIMMUNE
  2. METHYLPREDNISOLONE 4MG TAB [Suspect]
     Indication: ANAEMIA HAEMOLYTIC AUTOIMMUNE
     Dosage: IV
     Route: 042

REACTIONS (1)
  - NOCARDIOSIS [None]
